FAERS Safety Report 21227911 (Version 2)
Quarter: 2022Q3

REPORT INFORMATION
  Report Type: Spontaneous
  Country: AU (occurrence: AU)
  Receive Date: 20220818
  Receipt Date: 20220825
  Transmission Date: 20221026
  Serious: Yes (Hospitalization, Other)
  Sender: FDA-Public Use
  Company Number: AU-PFIZER INC-202201055059

PATIENT
  Age: 74 Year
  Sex: Female

DRUGS (1)
  1. ACCUPRIL [Suspect]
     Active Substance: QUINAPRIL HYDROCHLORIDE
     Dosage: UNK

REACTIONS (5)
  - Gastrointestinal carcinoma [Unknown]
  - Skin cancer [Unknown]
  - Drug ineffective [Unknown]
  - Blood pressure increased [Unknown]
  - Blood iron increased [Unknown]

NARRATIVE: CASE EVENT DATE: 20080101
